FAERS Safety Report 18784700 (Version 2)
Quarter: 2021Q1

REPORT INFORMATION
  Report Type: Spontaneous
  Country: US (occurrence: US)
  Receive Date: 20210126
  Receipt Date: 20210204
  Transmission Date: 20210419
  Serious: Yes (Other)
  Sender: FDA-Public Use
  Company Number: US-HORIZON-2021HZN00005

PATIENT

DRUGS (1)
  1. PROCYSBI [Suspect]
     Active Substance: CYSTEAMINE BITARTRATE
     Indication: CYSTINOSIS
     Dosage: 675 MG, BID
     Route: 048
     Dates: start: 20130917

REACTIONS (3)
  - Condition aggravated [Unknown]
  - Cystinosis [Unknown]
  - Amino acid level increased [Unknown]
